FAERS Safety Report 13890839 (Version 2)
Quarter: 2017Q4

REPORT INFORMATION
  Report Type: Spontaneous
  Country: US (occurrence: US)
  Receive Date: 20170822
  Receipt Date: 20171102
  Transmission Date: 20180320
  Serious: No
  Sender: FDA-Public Use
  Company Number: US-ASTRAZENECA-2017SE83402

PATIENT
  Age: 847 Month
  Sex: Female
  Weight: 65.8 kg

DRUGS (3)
  1. BEVESPI AEROSPHERE [Suspect]
     Active Substance: FORMOTEROL FUMARATE\GLYCOPYRROLATE
     Indication: EMPHYSEMA
     Dosage: 9 MCG/4.8 MCG, 1 PUFF TWICE A DAY
     Route: 055
     Dates: start: 201703
  2. VENTOLIN HFA INHALER [Concomitant]
     Indication: INHALATION THERAPY
     Dosage: 90.0UG AS REQUIRED
     Route: 055
  3. FLONASE [Concomitant]
     Active Substance: FLUTICASONE PROPIONATE
     Indication: NASAL CONGESTION
     Dosage: 50.0UG AS REQUIRED
     Route: 045
     Dates: start: 201704

REACTIONS (5)
  - Dyspnoea [Unknown]
  - Drug dose omission [Unknown]
  - Off label use [Unknown]
  - Wrong technique in product usage process [Unknown]
  - Device malfunction [Unknown]

NARRATIVE: CASE EVENT DATE: 201703
